FAERS Safety Report 9599799 (Version 1)
Quarter: 2013Q4

REPORT INFORMATION
  Report Type: Spontaneous
  Country: US (occurrence: US)
  Receive Date: 20131004
  Receipt Date: 20131004
  Transmission Date: 20140711
  Serious: No
  Sender: FDA-Public Use
  Company Number: US-AMGEN-USASP2013031111

PATIENT
  Age: 56 Year
  Sex: Female
  Weight: 108.84 kg

DRUGS (19)
  1. ENBREL [Suspect]
     Indication: PRODUCT USED FOR UNKNOWN INDICATION
     Dosage: 50 MG, QWK
     Route: 058
  2. NEXIUM                             /01479302/ [Concomitant]
     Dosage: 40 MG, UNK
  3. CHOLESTYRAMINE [Concomitant]
     Dosage: 4 G, POW
  4. VITAMIN D                          /00107901/ [Concomitant]
     Dosage: 1000 UNIT, UNK
  5. SPIRONOLACTON [Concomitant]
     Dosage: 25 MG, UNK
  6. SYMBICORT [Concomitant]
     Dosage: 160-4.5, AER
  7. FLUTICASONE [Concomitant]
     Dosage: 50 MUG, UNK
  8. METHOTREXATE [Concomitant]
     Dosage: 2.5 MG, UNK
  9. LEUCOVORIN CA [Concomitant]
     Dosage: 5 MG, UNK
  10. SUMATRIPTAN [Concomitant]
     Dosage: 25 MG, UNK
  11. FIORICET [Concomitant]
     Dosage: UNK
  12. K-DUR [Concomitant]
     Dosage: 20 MEQ, CR
  13. LOSARTAN POTASSIUM [Concomitant]
     Dosage: 50 MG, UNK
  14. LEVOTHYROXIN [Concomitant]
     Dosage: 137 MUG, UNK
  15. LITHIUM CARBON [Concomitant]
     Dosage: 300 MG, UNK
  16. DOXEPIN HCL [Concomitant]
     Dosage: 100 MG, UNK
  17. GUANFACINE [Concomitant]
     Dosage: 1 MG, UNK
  18. LORAZEPAM [Concomitant]
     Dosage: 1 MG, UNK
  19. NORCO [Concomitant]
     Dosage: 10-325 MG

REACTIONS (1)
  - Drug ineffective [Unknown]
